FAERS Safety Report 8586357 (Version 3)
Quarter: 2012Q4

REPORT INFORMATION
  Report Type: Report from Study
  Country: JP (occurrence: JP)
  Receive Date: 20120530
  Receipt Date: 20121227
  Transmission Date: 20130627
  Serious: Yes (Death, Other)
  Sender: FDA-Public Use
  Company Number: JP-ROCHE-1073279

PATIENT
  Age: 84 Year
  Sex: Male

DRUGS (4)
  1. RANIBIZUMAB [Suspect]
     Indication: AGE-RELATED MACULAR DEGENERATION
     Route: 050
     Dates: start: 20091001
  2. RANIBIZUMAB [Suspect]
     Dosage: second injection
     Route: 050
     Dates: start: 20091029
  3. RANIBIZUMAB [Suspect]
     Dosage: third injection
     Route: 050
     Dates: start: 20091126
  4. VIGAMOX [Concomitant]
     Dosage: stop date was reported as /Nov/2000
     Route: 065
     Dates: start: 200910, end: 200911

REACTIONS (2)
  - Joint contracture [Recovered/Resolved]
  - Death [Fatal]
